FAERS Safety Report 26130213 (Version 1)
Quarter: 2025Q4

REPORT INFORMATION
  Report Type: Spontaneous
  Country: US (occurrence: US)
  Receive Date: 20251208
  Receipt Date: 20251208
  Transmission Date: 20260118
  Serious: Yes (Hospitalization)
  Sender: MYLAN
  Company Number: US-MYLANLABS-2025M1103059

PATIENT
  Age: 86 Year
  Sex: Female

DRUGS (20)
  1. METFORMIN [Suspect]
     Active Substance: METFORMIN HYDROCHLORIDE
     Indication: Hyperglycaemia
     Dosage: 500 MILLIGRAM, BID
  2. METFORMIN [Suspect]
     Active Substance: METFORMIN HYDROCHLORIDE
     Dosage: 500 MILLIGRAM, BID
     Route: 065
  3. METFORMIN [Suspect]
     Active Substance: METFORMIN HYDROCHLORIDE
     Dosage: 500 MILLIGRAM, BID
     Route: 065
  4. METFORMIN [Suspect]
     Active Substance: METFORMIN HYDROCHLORIDE
     Dosage: 500 MILLIGRAM, BID
  5. INSULIN NOS [Suspect]
     Active Substance: INSULIN NOS
     Indication: Hyperglycaemia
     Dosage: UNK, QD, 10 UNITS
  6. INSULIN NOS [Suspect]
     Active Substance: INSULIN NOS
     Dosage: UNK, QD, 10 UNITS
     Route: 065
  7. INSULIN NOS [Suspect]
     Active Substance: INSULIN NOS
     Dosage: UNK, QD, 10 UNITS
     Route: 065
  8. INSULIN NOS [Suspect]
     Active Substance: INSULIN NOS
     Dosage: UNK, QD, 10 UNITS
  9. INSULIN NOS [Suspect]
     Active Substance: INSULIN NOS
     Indication: Hyperglycaemia
     Dosage: UNK
  10. INSULIN NOS [Suspect]
     Active Substance: INSULIN NOS
     Dosage: UNK
     Route: 065
  11. INSULIN NOS [Suspect]
     Active Substance: INSULIN NOS
     Dosage: UNK
     Route: 065
  12. INSULIN NOS [Suspect]
     Active Substance: INSULIN NOS
     Dosage: UNK
  13. INSULIN NOS [Suspect]
     Active Substance: INSULIN NOS
     Indication: Hyperglycaemia
     Dosage: UNK, QD, SUBCUTANEOUS BASAL-BOLUS INSULIN 800-900 UNITS
  14. INSULIN NOS [Suspect]
     Active Substance: INSULIN NOS
     Dosage: UNK, QD, SUBCUTANEOUS BASAL-BOLUS INSULIN 800-900 UNITS
     Route: 058
  15. INSULIN NOS [Suspect]
     Active Substance: INSULIN NOS
     Dosage: UNK, QD, SUBCUTANEOUS BASAL-BOLUS INSULIN 800-900 UNITS
     Route: 058
  16. INSULIN NOS [Suspect]
     Active Substance: INSULIN NOS
     Dosage: UNK, QD, SUBCUTANEOUS BASAL-BOLUS INSULIN 800-900 UNITS
  17. PIOGLITAZONE [Suspect]
     Active Substance: PIOGLITAZONE
     Indication: Hyperglycaemia
     Dosage: 30 MILLIGRAM, QD
  18. PIOGLITAZONE [Suspect]
     Active Substance: PIOGLITAZONE
     Dosage: 30 MILLIGRAM, QD
     Route: 065
  19. PIOGLITAZONE [Suspect]
     Active Substance: PIOGLITAZONE
     Dosage: 30 MILLIGRAM, QD
     Route: 065
  20. PIOGLITAZONE [Suspect]
     Active Substance: PIOGLITAZONE
     Dosage: 30 MILLIGRAM, QD

REACTIONS (1)
  - Drug ineffective [Unknown]
